FAERS Safety Report 6668774-7 (Version None)
Quarter: 2010Q2

REPORT INFORMATION
  Report Type: 
  Country: None (occurrence: None)
  Receive Date: 20100401
  Receipt Date: 20100316
  Transmission Date: 20101027
  Serious: Yes (Hospitalization)
  Sender: FDA-Public Use
  Company Number: 1-21944616

PATIENT
  Age: 78 Year
  Sex: Female

DRUGS (3)
  1. WARFARIN SODIUM [Suspect]
     Dosage: ORAL }8 YEARS
     Route: 048
  2. AMIODARONE HCL [Suspect]
     Indication: ATRIAL FIBRILLATION
     Dosage: ORAL; 8 YEARS
     Route: 048
  3. FLUORINATED CORTICOSTEROID [Suspect]
     Dosage: TOPICAL
     Route: 061

REACTIONS (14)
  - CARDIOMEGALY [None]
  - CATARACT [None]
  - DERMATITIS [None]
  - DRUG INTERACTION [None]
  - HEPATIC CYST [None]
  - INTERSTITIAL LUNG DISEASE [None]
  - KERATOPATHY [None]
  - PLATELET COUNT DECREASED [None]
  - RESTRICTIVE PULMONARY DISEASE [None]
  - SCAB [None]
  - SKIN ATROPHY [None]
  - SKIN EROSION [None]
  - STAPHYLOCOCCUS TEST POSITIVE [None]
  - VENOUS INSUFFICIENCY [None]
